FAERS Safety Report 22126344 (Version 1)
Quarter: 2023Q1

REPORT INFORMATION
  Report Type: Spontaneous
  Country: US (occurrence: US)
  Receive Date: 20230322
  Receipt Date: 20230322
  Transmission Date: 20230417
  Serious: No
  Sender: FDA-Public Use
  Company Number: US-APIL-2308430US

PATIENT

DRUGS (1)
  1. BOTOX COSMETIC [Suspect]
     Active Substance: ONABOTULINUMTOXINA

REACTIONS (5)
  - Facial discomfort [Unknown]
  - Dermatochalasis [Unknown]
  - Muscle rigidity [Unknown]
  - Therapeutic product effect increased [Unknown]
  - Product reconstitution quality issue [None]
